FAERS Safety Report 11272302 (Version 1)
Quarter: 2015Q3

REPORT INFORMATION
  Report Type: Spontaneous
  Country: US (occurrence: None)
  Receive Date: 20150713
  Receipt Date: 20150713
  Transmission Date: 20151125
  Serious: No
  Sender: FDA-Public Use
  Company Number: 2014-00014

PATIENT
  Age: 51 Year
  Sex: Female

DRUGS (3)
  1. ZICAM COLD REMEDY [Suspect]
     Active Substance: ZINC ACETATE\ZINC GLUCONATE
     Indication: PROPHYLAXIS
     Dosage: 2 SPRAYS ORALLY EVERY 5-6 HOURS
     Route: 048
     Dates: start: 20140121, end: 20140123
  2. ZICAM COLD REMEDY [Suspect]
     Active Substance: ZINC ACETATE\ZINC GLUCONATE
     Indication: NASOPHARYNGITIS
     Dosage: 2 SPRAYS ORALLY EVERY 5-6 HOURS
     Route: 048
     Dates: start: 20140121, end: 20140123
  3. HOMEOPATHICS [Suspect]
     Active Substance: HOMEOPATHICS

REACTIONS (1)
  - Ageusia [None]

NARRATIVE: CASE EVENT DATE: 20140123
